FAERS Safety Report 6806912-3 (Version None)
Quarter: 2010Q2

REPORT INFORMATION
  Report Type: 
  Country: None (occurrence: None)
  Receive Date: 20100629
  Receipt Date: 20080617
  Transmission Date: 20101027
  Serious: No
  Sender: FDA-Public Use
  Company Number: US-PFIZER INC-2008050977

PATIENT
  Sex: Female
  Weight: 75.3 kg

DRUGS (5)
  1. ZYVOX [Suspect]
     Indication: STAPHYLOCOCCAL INFECTION
     Dates: start: 20080617
  2. LACTINEX [Concomitant]
  3. DOCUSATE [Concomitant]
  4. LOVENOX [Concomitant]
  5. LISINOPRIL [Concomitant]

REACTIONS (1)
  - HYPOAESTHESIA [None]
